FAERS Safety Report 25085954 (Version 1)
Quarter: 2025Q1

REPORT INFORMATION
  Report Type: Spontaneous
  Country: US (occurrence: US)
  Receive Date: 20250317
  Receipt Date: 20250317
  Transmission Date: 20250408
  Serious: No
  Sender: TONIX PHARMACEUTICALS
  Company Number: US-TONIX MEDICINES, INC.-2025TNX00003

PATIENT
  Age: 36 Year
  Sex: Female

DRUGS (1)
  1. TOSYMRA [Suspect]
     Active Substance: SUMATRIPTAN
     Indication: Migraine
     Route: 045
     Dates: start: 20201209, end: 20210730

REACTIONS (2)
  - Pain [Unknown]
  - Burning sensation [Unknown]
